FAERS Safety Report 12246034 (Version 2)
Quarter: 2016Q2

REPORT INFORMATION
  Report Type: Spontaneous
  Country: CH (occurrence: AU)
  Receive Date: 20160407
  Receipt Date: 20160519
  Transmission Date: 20160815
  Serious: Yes (Hospitalization)
  Sender: FDA-Public Use
  Company Number: CH-LPDUSPRD-20160290

PATIENT
  Age: 34 Year
  Sex: Female

DRUGS (1)
  1. FERINJECT [Suspect]
     Active Substance: FERRIC CARBOXYMALTOSE
     Dosage: 1000 MG IN 200 ML NS
     Route: 041
     Dates: start: 20160318, end: 20160318

REACTIONS (8)
  - Blood creatinine increased [Unknown]
  - Lymphadenopathy [Not Recovered/Not Resolved]
  - Ear pain [Not Recovered/Not Resolved]
  - Viral infection [Recovered/Resolved]
  - Headache [Recovered/Resolved]
  - Head discomfort [Not Recovered/Not Resolved]
  - Malaise [Not Recovered/Not Resolved]
  - Nasopharyngitis [Recovered/Resolved]

NARRATIVE: CASE EVENT DATE: 201603
